FAERS Safety Report 11715402 (Version 2)
Quarter: 2015Q4

REPORT INFORMATION
  Report Type: Spontaneous
  Country: US (occurrence: US)
  Receive Date: 20151104
  Receipt Date: 20151110
  Transmission Date: 20160304
  Serious: No
  Sender: FDA-Public Use
  Company Number: US-ELI_LILLY_AND_COMPANY-US201106008248

PATIENT
  Sex: Male

DRUGS (2)
  1. FORTEO [Suspect]
     Active Substance: TERIPARATIDE
     Indication: OSTEOPOROSIS
     Dosage: 20 UG, QD
     Route: 065
     Dates: start: 20110512, end: 20110612
  2. DILANTIN [Concomitant]
     Active Substance: PHENYTOIN

REACTIONS (4)
  - Lung disorder [Not Recovered/Not Resolved]
  - Traumatic lung injury [Unknown]
  - Dyspnoea [Recovering/Resolving]
  - Intentional product misuse [Unknown]
